FAERS Safety Report 7544088-8 (Version None)
Quarter: 2011Q2

REPORT INFORMATION
  Report Type: 
  Country: None (occurrence: None)
  Receive Date: 20110613
  Receipt Date: 20051206
  Transmission Date: 20111010
  Serious: Yes (Death)
  Sender: FDA-Public Use
  Company Number: PHHO2005BR18570

PATIENT
  Sex: Female

DRUGS (4)
  1. INDERAL [Concomitant]
     Indication: HYPERTENSION
  2. EXFORGE [Suspect]
     Indication: HYPERTENSION
     Dosage: 160/5 MG DAILY
     Route: 048
     Dates: start: 20040420
  3. PROPRANOLOL [Concomitant]
     Indication: HYPERTENSION
     Dates: end: 20040511
  4. CHLORTHALIDONE [Concomitant]
     Indication: HYPERTENSION

REACTIONS (4)
  - ABASIA [None]
  - HYPOKINESIA [None]
  - CEREBROVASCULAR ACCIDENT [None]
  - TYPE 2 DIABETES MELLITUS [None]
